FAERS Safety Report 14857053 (Version 2)
Quarter: 2018Q3

REPORT INFORMATION
  Report Type: Report from Study
  Country: US (occurrence: US)
  Receive Date: 20180507
  Receipt Date: 20180719
  Transmission Date: 20181010
  Serious: Yes (Other)
  Sender: FDA-Public Use
  Company Number: US-009507513-1007USA01498

PATIENT
  Age: 39 Year
  Sex: Female

DRUGS (8)
  1. PREZISTA [Suspect]
     Active Substance: DARUNAVIR ETHANOLATE
     Indication: ACQUIRED IMMUNODEFICIENCY SYNDROME
     Dosage: 1200 MG, QD
     Route: 048
     Dates: start: 20090101, end: 20091201
  2. NORVIR [Suspect]
     Active Substance: RITONAVIR
     Indication: ACQUIRED IMMUNODEFICIENCY SYNDROME
     Dosage: 200 MG, QD
     Route: 048
  3. KALETRA [Suspect]
     Active Substance: LOPINAVIR\RITONAVIR
     Indication: ACQUIRED IMMUNODEFICIENCY SYNDROME
     Dosage: 4 DF, QD
     Route: 048
     Dates: start: 20100324, end: 20100513
  4. PREZISTA [Suspect]
     Active Substance: DARUNAVIR ETHANOLATE
     Dosage: 1200 MG, QD
     Route: 048
     Dates: start: 20100514
  5. ISENTRESS [Suspect]
     Active Substance: RALTEGRAVIR POTASSIUM
     Indication: ACQUIRED IMMUNODEFICIENCY SYNDROME
     Dosage: 800 MG, QD
     Route: 048
     Dates: end: 20100323
  6. EMTRIVA [Suspect]
     Active Substance: EMTRICITABINE
     Indication: ACQUIRED IMMUNODEFICIENCY SYNDROME
     Dosage: 200 MG, QD
     Route: 048
     Dates: end: 20100323
  7. VIREAD [Suspect]
     Active Substance: TENOFOVIR DISOPROXIL FUMARATE
     Indication: ACQUIRED IMMUNODEFICIENCY SYNDROME
     Dosage: 300 MG, QD
     Route: 048
     Dates: start: 20100324, end: 20100513
  8. COMBIVIR [Suspect]
     Active Substance: LAMIVUDINE\ZIDOVUDINE
     Indication: ACQUIRED IMMUNODEFICIENCY SYNDROME
     Dosage: 2 DF, QD
     Route: 048
     Dates: start: 20100514

REACTIONS (4)
  - Urosepsis [Unknown]
  - Maternal exposure during pregnancy [Recovered/Resolved]
  - Stillbirth [Unknown]
  - Hypotension [Unknown]

NARRATIVE: CASE EVENT DATE: 20100608
